FAERS Safety Report 13216908 (Version 1)
Quarter: 2017Q1

REPORT INFORMATION
  Report Type: Spontaneous
  Country: US (occurrence: US)
  Receive Date: 20170210
  Receipt Date: 20170210
  Transmission Date: 20170428
  Serious: Yes (Hospitalization)
  Sender: FDA-Public Use
  Company Number: US-ACORDA-ACO_121207_2016

PATIENT
  Age: 41 Year
  Sex: Female

DRUGS (1)
  1. AMPYRA [Suspect]
     Active Substance: DALFAMPRIDINE
     Indication: PRODUCT USED FOR UNKNOWN INDICATION
     Dosage: UNK
     Route: 065
     Dates: start: 2015, end: 2015

REACTIONS (6)
  - Drug ineffective [Unknown]
  - Condition aggravated [Recovering/Resolving]
  - Central nervous system lesion [Unknown]
  - Dysarthria [Recovering/Resolving]
  - Gait disturbance [Recovering/Resolving]
  - Multiple sclerosis relapse [Unknown]

NARRATIVE: CASE EVENT DATE: 201507
